FAERS Safety Report 5870177-X (Version None)
Quarter: 2008Q3

REPORT INFORMATION
  Report Type: 
  Country: None (occurrence: None)
  Receive Date: 20080904
  Receipt Date: 20080902
  Transmission Date: 20090109
  Serious: Yes (Hospitalization)
  Sender: FDA-Public Use
  Company Number: FR-BRISTOL-MYERS SQUIBB COMPANY-14322713

PATIENT
  Age: 82 Year
  Sex: Male

DRUGS (10)
  1. ELISOR TABS 20 MG [Suspect]
     Dates: end: 20080621
  2. ATHYMIL [Suspect]
     Dates: start: 20080430, end: 20080617
  3. TERCIAN [Suspect]
     Dates: start: 20080527, end: 20080617
  4. HALDOL [Suspect]
     Dosage: HALDOL 2MG/ML
     Dates: start: 20080530, end: 20080617
  5. REMINYL [Suspect]
     Dates: end: 20080613
  6. AMLOR [Concomitant]
  7. DETENSIEL [Concomitant]
  8. THERALENE [Concomitant]
  9. GLUCOPHAGE [Concomitant]
  10. TIAPRIDAL [Concomitant]

REACTIONS (1)
  - AGRANULOCYTOSIS [None]
